FAERS Safety Report 14257112 (Version 1)
Quarter: 2017Q4

REPORT INFORMATION
  Report Type: Spontaneous
  Country: US (occurrence: US)
  Receive Date: 20171206
  Receipt Date: 20171206
  Transmission Date: 20180321
  Serious: No
  Sender: FDA-Public Use
  Company Number: US-009507513-1711USA006753

PATIENT
  Age: 93 Year
  Sex: Female

DRUGS (1)
  1. CARBIDOPA (+) LEVODOPA [Suspect]
     Active Substance: CARBIDOPA\LEVODOPA
     Indication: PARKINSON^S DISEASE
     Dosage: REFUSE TO ANSWER
     Route: 048
     Dates: start: 200803, end: 200803

REACTIONS (5)
  - Amnesia [Recovered/Resolved]
  - Drooling [Recovered/Resolved]
  - Drug hypersensitivity [Recovered/Resolved]
  - Emotional poverty [Recovered/Resolved]
  - Asthenia [Recovered/Resolved]

NARRATIVE: CASE EVENT DATE: 200803
